FAERS Safety Report 7394725-6 (Version None)
Quarter: 2011Q2

REPORT INFORMATION
  Report Type: 
  Country: None (occurrence: None)
  Receive Date: 20110405
  Receipt Date: 20110323
  Transmission Date: 20111010
  Serious: Yes (Hospitalization)
  Sender: FDA-Public Use
  Company Number: PHHY2011SE24267

PATIENT
  Sex: Male

DRUGS (18)
  1. OMEPRAZOLE [Concomitant]
  2. MAXIDEX [Concomitant]
  3. ETALPHA [Concomitant]
  4. CAPTOPRIL [Concomitant]
  5. SODIUM BICARBONATE [Concomitant]
  6. PLENDIL [Concomitant]
  7. SANDIMMUNE [Suspect]
     Dosage: 100 MG, UNK
     Dates: start: 20091103
  8. KALCIDON [Concomitant]
  9. FURIX [Concomitant]
  10. NOVORAPID [Concomitant]
  11. KLACID [Suspect]
     Dates: start: 20101229, end: 20110104
  12. SELOKEEN ZOC [Concomitant]
  13. SIMVASTATIN [Concomitant]
  14. COSOPT [Concomitant]
  15. PREDNISOLONE [Concomitant]
  16. ALLOPURINOL [Concomitant]
  17. AUROBINDO [Suspect]
     Dosage: 500 MG, UNK
     Dates: start: 20101229, end: 20110104
  18. WARAN [Concomitant]

REACTIONS (2)
  - IMMUNOSUPPRESSANT DRUG LEVEL INCREASED [None]
  - RENAL FAILURE ACUTE [None]
